FAERS Safety Report 11282431 (Version 1)
Quarter: 2015Q3

REPORT INFORMATION
  Report Type: Spontaneous
  Country: US (occurrence: US)
  Receive Date: 20150720
  Receipt Date: 20150720
  Transmission Date: 20151125
  Serious: No
  Sender: FDA-Public Use
  Company Number: US-AMGEN-USASP2015071315

PATIENT
  Age: 32 Year
  Sex: Female

DRUGS (1)
  1. ENBREL [Suspect]
     Active Substance: ETANERCEPT
     Indication: PRODUCT USED FOR UNKNOWN INDICATION
     Dosage: UNK
     Route: 065

REACTIONS (7)
  - Abdominal tenderness [Unknown]
  - Injection site erythema [Unknown]
  - Injection site pain [Unknown]
  - Abdominal pain upper [Unknown]
  - Injection site warmth [Unknown]
  - Injection site induration [Unknown]
  - Injection site reaction [Unknown]
